FAERS Safety Report 5536923-X (Version None)
Quarter: 2007Q4

REPORT INFORMATION
  Report Type: 
  Country: None (occurrence: None)
  Receive Date: 20071207
  Receipt Date: 20071128
  Transmission Date: 20080405
  Serious: Yes (Other)
  Sender: FDA-Public Use
  Company Number: PHEH2007US15231

PATIENT
  Sex: Female

DRUGS (5)
  1. LAMISIL [Suspect]
     Dosage: 250 MG, QD
     Route: 048
  2. LEVOTHYROXINE SODIUM [Concomitant]
  3. NASONEX [Concomitant]
  4. ALLEGRA [Concomitant]
  5. DIAZEPAM [Concomitant]

REACTIONS (3)
  - GOITRE [None]
  - RASH [None]
  - SWELLING [None]
